FAERS Safety Report 16357789 (Version 3)
Quarter: 2025Q4

REPORT INFORMATION
  Report Type: Spontaneous
  Country: EU (occurrence: EU)
  Receive Date: 20190527
  Receipt Date: 20251205
  Transmission Date: 20260118
  Serious: Yes (Hospitalization)
  Sender: ALEXION PHARMACEUTICALS
  Company Number: 2019SE76808

PATIENT
  Age: 8 Decade
  Sex: Male

DRUGS (17)
  1. ESOMEPRAZOLE [Interacting]
     Active Substance: ESOMEPRAZOLE
     Indication: Gastrooesophageal reflux disease
     Dosage: 40 MILLIGRAM, QD
  2. PIRFENIDONE [Interacting]
     Active Substance: PIRFENIDONE
     Indication: Idiopathic pulmonary fibrosis
     Dosage: 267 MILLIGRAM, TID
     Route: 065
  3. PIRFENIDONE [Interacting]
     Active Substance: PIRFENIDONE
     Dosage: 267 MILLIGRAM, TID
     Route: 065
  4. PIRFENIDONE [Interacting]
     Active Substance: PIRFENIDONE
     Dosage: 267 MILLIGRAM, TID
     Route: 065
  5. PIRFENIDONE [Interacting]
     Active Substance: PIRFENIDONE
     Dosage: 534 MILLIGRAM, TID
     Route: 065
  6. PIRFENIDONE [Interacting]
     Active Substance: PIRFENIDONE
     Dosage: 534 MILLIGRAM, TID
     Route: 065
  7. PIRFENIDONE [Interacting]
     Active Substance: PIRFENIDONE
     Dosage: 534 MILLIGRAM, TID
     Route: 065
  8. PIRFENIDONE [Interacting]
     Active Substance: PIRFENIDONE
     Dosage: 801 MILLIGRAM, TID
     Route: 065
  9. PIRFENIDONE [Interacting]
     Active Substance: PIRFENIDONE
     Dosage: 801 MILLIGRAM, TID
     Route: 065
  10. PIRFENIDONE [Interacting]
     Active Substance: PIRFENIDONE
     Dosage: 801 MILLIGRAM, TID
     Route: 065
  11. PIRFENIDONE [Interacting]
     Active Substance: PIRFENIDONE
     Dosage: 801 MILLIGRAM, TID
     Route: 065
  12. PIRFENIDONE [Interacting]
     Active Substance: PIRFENIDONE
     Dosage: 801 MILLIGRAM, TID
     Route: 065
  13. PIRFENIDONE [Interacting]
     Active Substance: PIRFENIDONE
     Dosage: 801 MILLIGRAM, TID
     Route: 065
  14. PIRFENIDONE [Interacting]
     Active Substance: PIRFENIDONE
     Dosage: TIME INTERVAL: 0.33333333 DAYS: 534 MG, 3X/DAY WEEK 2
  15. PIRFENIDONE [Interacting]
     Active Substance: PIRFENIDONE
     Dosage: TIME INTERVAL: 0.33333333 DAYS: 267 MG, 3X/DAY WEEK 1
  16. PIRFENIDONE [Interacting]
     Active Substance: PIRFENIDONE
     Dosage: TIME INTERVAL: 0.33333333 DAYS: 801 MG, 3X/DAY ONWARDS
  17. PIRFENIDONE [Interacting]
     Active Substance: PIRFENIDONE
     Dosage: TIME INTERVAL: 0.33333333 DAYS: 801 MG, 3X/DAY WEEK 3

REACTIONS (3)
  - Drug interaction [Not Recovered/Not Resolved]
  - Drug-induced liver injury [Not Recovered/Not Resolved]
  - Toxicity to various agents [Not Recovered/Not Resolved]
